APPROVED DRUG PRODUCT: ONDANSETRON
Active Ingredient: ONDANSETRON
Strength: 4MG
Dosage Form/Route: TABLET, ORALLY DISINTEGRATING;ORAL
Application: A077406 | Product #003 | TE Code: AB
Applicant: CHARTWELL MOLECULES LLC
Approved: Dec 26, 2006 | RLD: No | RS: No | Type: RX